FAERS Safety Report 15270821 (Version 2)
Quarter: 2019Q3

REPORT INFORMATION
  Report Type: Spontaneous
  Country: US (occurrence: US)
  Receive Date: 20180813
  Receipt Date: 20190910
  Transmission Date: 20191004
  Serious: No
  Sender: FDA-Public Use
  Company Number: US-SA-2018SA219078

PATIENT
  Age: 70 Year
  Sex: Female

DRUGS (2)
  1. ALLEGRA ALLERGY [Suspect]
     Active Substance: FEXOFENADINE HYDROCHLORIDE
     Indication: ECZEMA
     Dosage: 180 MG, QD
     Dates: start: 201903
  2. PREDNISONE. [Suspect]
     Active Substance: PREDNISONE
     Indication: ARTHRITIS

REACTIONS (2)
  - Arthralgia [Unknown]
  - Somnolence [Unknown]
